FAERS Safety Report 8781666 (Version 2)
Quarter: 2012Q4

REPORT INFORMATION
  Report Type: 
  Country: US (occurrence: US)
  Receive Date: 20120917
  Receipt Date: 20120927
  Transmission Date: 20130627
  Serious: Yes (Other)
  Sender: FDA-Public Use
  Company Number: US-JNJFOC-20120902461

PATIENT
  Sex: Female
  Weight: 111.13 kg

DRUGS (2)
  1. ELMIRON [Suspect]
     Indication: CYSTITIS INTERSTITIAL
     Route: 065
     Dates: start: 2011, end: 201208
  2. ELMIRON [Suspect]
     Indication: CYSTITIS INTERSTITIAL
     Route: 043
     Dates: start: 2011

REACTIONS (9)
  - Bladder operation [Not Recovered/Not Resolved]
  - Gastrooesophageal reflux disease [Not Recovered/Not Resolved]
  - Gastrointestinal disorder [Not Recovered/Not Resolved]
  - Cystitis [Recovered/Resolved]
  - Chest discomfort [Unknown]
  - Incorrect route of drug administration [Recovered/Resolved]
  - Alopecia [Not Recovered/Not Resolved]
  - White blood cell count decreased [Not Recovered/Not Resolved]
  - Anaemia [Recovered/Resolved]
